FAERS Safety Report 4834248-9 (Version None)
Quarter: 2005Q4

REPORT INFORMATION
  Report Type: 
  Country: None (occurrence: None)
  Receive Date: 20051122
  Receipt Date: 20050824
  Transmission Date: 20060501
  Serious: Yes (Disabling, Other)
  Sender: FDA-Public Use
  Company Number: US-MERCK-0508USA04008

PATIENT
  Age: 56 Year
  Sex: Female
  Weight: 55 kg

DRUGS (9)
  1. TOPROL-XL [Concomitant]
     Route: 065
  2. LEXAPRO [Concomitant]
     Indication: DEPRESSION
     Route: 048
     Dates: end: 20040601
  3. SYNTHROID [Concomitant]
     Route: 065
  4. CORTISONE [Concomitant]
     Route: 065
  5. PRINIVIL [Concomitant]
     Indication: HYPERTENSION
     Route: 048
     Dates: end: 20040201
  6. PRINIVIL [Concomitant]
     Indication: RENAL FAILURE
     Route: 048
     Dates: end: 20040201
  7. LAMICTAL [Concomitant]
     Indication: DEPRESSION
     Route: 065
     Dates: end: 20040601
  8. FOSAMAX [Suspect]
     Indication: OSTEOPOROSIS
     Route: 048
     Dates: start: 20010801
  9. LITHIUM CARBONATE [Suspect]
     Indication: BIPOLAR DISORDER
     Route: 048
     Dates: end: 20040101

REACTIONS (3)
  - DRUG DOSE OMISSION [None]
  - NO ADVERSE EFFECT [None]
  - RENAL FAILURE [None]
